FAERS Safety Report 9531291 (Version 1)
Quarter: 2013Q3

REPORT INFORMATION
  Report Type: Spontaneous
  Country: US (occurrence: None)
  Receive Date: 20130916
  Receipt Date: 20130916
  Transmission Date: 20140515
  Serious: No
  Sender: FDA-Public Use
  Company Number: None

PATIENT
  Age: 54 Year
  Sex: Female
  Weight: 99.79 kg

DRUGS (1)
  1. FLUCONAZOLE [Suspect]
     Indication: CANDIDA INFECTION
     Dates: start: 20130803, end: 20130811

REACTIONS (5)
  - Lip dry [None]
  - Dry mouth [None]
  - Cheilitis [None]
  - Skin fissures [None]
  - No therapeutic response [None]
